FAERS Safety Report 5426798-1 (Version None)
Quarter: 2007Q3

REPORT INFORMATION
  Report Type: 
  Country: None (occurrence: None)
  Receive Date: 20070827
  Receipt Date: 20070308
  Transmission Date: 20080115
  Serious: No
  Sender: FDA-Public Use
  Company Number: US-BOEHRINGER INGELHEIM PHARMACEUTICALS, INC.-2007-BP-03234BP

PATIENT
  Sex: Female

DRUGS (6)
  1. CATAPRES-TTS-1 [Suspect]
     Indication: HYPERTENSION
     Route: 061
     Dates: start: 20070305, end: 20070308
  2. TOPROL-XL [Concomitant]
  3. CAPTOPRIL [Concomitant]
  4. NORVASC [Concomitant]
  5. BENICAR [Concomitant]
  6. PLAVIX [Concomitant]

REACTIONS (1)
  - BLOOD PRESSURE INCREASED [None]
